FAERS Safety Report 8464535-7 (Version None)
Quarter: 2012Q2

REPORT INFORMATION
  Report Type: 
  Country: None (occurrence: None)
  Receive Date: 20120323
  Receipt Date: 20111018
  Transmission Date: 20120825
  Serious: Yes (Other)
  Sender: FDA-Public Use
  Company Number: 163-21880-11102055

PATIENT
  Age: 66 Year
  Sex: Male

DRUGS (8)
  1. ATORVASTATIN [Concomitant]
  2. REVLIMID [Suspect]
     Indication: B-CELL LYMPHOMA
     Dosage: 15 MG, 1 IN 1 D, PO 25 MG, QD D1-21, PO 15 MG, 1 IN 1 D, PO
     Route: 048
     Dates: start: 20110801
  3. REVLIMID [Suspect]
     Indication: B-CELL LYMPHOMA
     Dosage: 15 MG, 1 IN 1 D, PO 25 MG, QD D1-21, PO 15 MG, 1 IN 1 D, PO
     Route: 048
     Dates: start: 20110801
  4. REVLIMID [Suspect]
     Indication: B-CELL LYMPHOMA
     Dosage: 15 MG, 1 IN 1 D, PO 25 MG, QD D1-21, PO 15 MG, 1 IN 1 D, PO
     Route: 048
     Dates: start: 20111001
  5. GABAPENTIN [Concomitant]
  6. ACYCLOVIR [Concomitant]
  7. PLAVIX [Concomitant]
  8. ASPIRIN [Concomitant]

REACTIONS (1)
  - PNEUMONITIS [None]
